FAERS Safety Report 7253309 (Version 2)
Quarter: 2013Q3

REPORT INFORMATION
  Report Type: Spontaneous
  Country: None (occurrence: None)
  Receive Date: 20100106
  Receipt Date: 20130709
  Transmission Date: 20140515
  Serious: Yes (Congenital Anomaly, Other)
  Sender: FDA-Public Use
  Company Number: AUR-APL-2010-00008

PATIENT
  Sex: Male
  Weight: 2.5 kg

DRUGS (7)
  1. PAROXETINE (PAROXETINE) [Suspect]
     Indication: PANIC DISORDER
     Route: 064
  2. TRAZODONE HCL [Suspect]
     Indication: PANIC DISORDER
     Route: 064
  3. BROMAZEPAM [Suspect]
     Indication: PANIC DISORDER
     Route: 064
  4. AMOXAPINE [Suspect]
     Indication: PANIC DISORDER
     Dosage: TRANSPLACENT
     Route: 064
  5. NITRAZEPAM [Suspect]
     Indication: PANIC DISORDER
     Route: 064
  6. ETIZOLAM [Suspect]
     Indication: PANIC DISORDER
     Route: 064
  7. AMITRIPTYLINE [Suspect]
     Indication: PANIC DISORDER
     Route: 064

REACTIONS (7)
  - Irritability [None]
  - Feeding disorder neonatal [None]
  - Maternal drugs affecting foetus [None]
  - Apnoea [None]
  - Hypercapnia [None]
  - Hypotonia [None]
  - Neonatal respiratory acidosis [None]
